FAERS Safety Report 16840382 (Version 1)
Quarter: 2019Q3

REPORT INFORMATION
  Report Type: Spontaneous
  Country: DE (occurrence: DE)
  Receive Date: 20190923
  Receipt Date: 20190923
  Transmission Date: 20191005
  Serious: Yes (Other)
  Sender: FDA-Public Use
  Company Number: PHHY2019DE218426

PATIENT
  Sex: Female

DRUGS (1)
  1. COSENTYX [Suspect]
     Active Substance: SECUKINUMAB
     Indication: PRODUCT USED FOR UNKNOWN INDICATION
     Dosage: 300 MG, Q4W (EVERY 4 WEEKS)
     Route: 065
     Dates: start: 201808

REACTIONS (3)
  - Thyroid mass [Unknown]
  - Thyroid cancer [Unknown]
  - Concomitant disease aggravated [Unknown]
